FAERS Safety Report 16938743 (Version 1)
Quarter: 2019Q4

REPORT INFORMATION
  Report Type: Spontaneous
  Country: US (occurrence: US)
  Receive Date: 20190828
  Receipt Date: 20190828
  Transmission Date: 20200122
  Serious: Yes (Hospitalization)
  Sender: FDA-Public Use
  Company Number: None

PATIENT
  Age: 47 Year
  Sex: Male
  Weight: 90.26 kg

DRUGS (1)
  1. YESCARTA [Suspect]
     Active Substance: AXICABTAGENE CILOLEUCEL
     Indication: DIFFUSE LARGE B-CELL LYMPHOMA
     Route: 042
     Dates: start: 20190729

REACTIONS (9)
  - Disorientation [None]
  - Aphasia [None]
  - Slow response to stimuli [None]
  - Confusional state [None]
  - Cytokine release syndrome [None]
  - Somnolence [None]
  - Neurotoxicity [None]
  - Lethargy [None]
  - Aggression [None]

NARRATIVE: CASE EVENT DATE: 20190729
